FAERS Safety Report 6324326-X (Version None)
Quarter: 2009Q3

REPORT INFORMATION
  Report Type: 
  Country: None (occurrence: None)
  Receive Date: 20090824
  Receipt Date: 20090601
  Transmission Date: 20100115
  Serious: No
  Sender: FDA-Public Use
  Company Number: US-ABBOTT-09P-163-0573919-00

PATIENT
  Sex: Female

DRUGS (8)
  1. NIASPAN [Suspect]
     Indication: HIGH DENSITY LIPOPROTEIN DECREASED
     Route: 048
     Dates: start: 20090406
  2. ASPIRIN [Concomitant]
     Indication: DRUG USE FOR UNKNOWN INDICATION
     Route: 048
  3. METOPROLOL [Concomitant]
     Indication: DRUG USE FOR UNKNOWN INDICATION
  4. MICARDIS [Concomitant]
     Indication: DRUG USE FOR UNKNOWN INDICATION
  5. HYDROCHLOROTHIAZIDE [Concomitant]
     Indication: DRUG USE FOR UNKNOWN INDICATION
  6. TRILIPIX [Concomitant]
     Indication: DRUG USE FOR UNKNOWN INDICATION
  7. LEVOTHROID [Concomitant]
     Indication: DRUG USE FOR UNKNOWN INDICATION
  8. XANAX [Concomitant]
     Indication: INSOMNIA

REACTIONS (3)
  - DYSPEPSIA [None]
  - FLUSHING [None]
  - GASTROINTESTINAL SOUNDS ABNORMAL [None]
